FAERS Safety Report 15661048 (Version 1)
Quarter: 2018Q4

REPORT INFORMATION
  Report Type: Spontaneous
  Country: US (occurrence: US)
  Receive Date: 20181116
  Receipt Date: 20181116
  Transmission Date: 20190205
  Serious: No
  Sender: FDA-Public Use
  Company Number: None

PATIENT
  Age: 79 Year
  Sex: Female

DRUGS (1)
  1. METHOTREXATE 25MG/ML HOSPIRA [Suspect]
     Active Substance: METHOTREXATE
     Indication: DRUG THERAPY
     Dosage: SQ
     Dates: start: 20170101

REACTIONS (1)
  - Alopecia [None]

NARRATIVE: CASE EVENT DATE: 20180813
